FAERS Safety Report 4763572-3 (Version None)
Quarter: 2005Q3

REPORT INFORMATION
  Report Type: 
  Country: None (occurrence: None)
  Receive Date: 20050908
  Receipt Date: 20050324
  Transmission Date: 20060218
  Serious: Yes (Hospitalization)
  Sender: FDA-Public Use
  Company Number: US-MERCK-0503USA04609

PATIENT
  Age: 49 Year
  Sex: Female
  Weight: 93 kg

DRUGS (12)
  1. VIOXX [Suspect]
     Indication: BACK PAIN
     Route: 048
     Dates: start: 20020827, end: 20041216
  2. VIOXX [Suspect]
     Indication: OSTEOARTHRITIS
     Route: 048
     Dates: start: 20020827, end: 20041216
  3. ZITHROMAX [Concomitant]
     Route: 065
  4. GUIATUSS [Concomitant]
     Route: 065
  5. PREMPRO [Concomitant]
     Indication: MENOPAUSE
     Route: 065
  6. NIZORAL [Concomitant]
     Indication: RASH
     Route: 061
  7. LOTRISONE [Concomitant]
     Route: 065
  8. TYLENOL [Concomitant]
     Route: 065
     Dates: start: 20010401
  9. MOTRIN [Concomitant]
     Route: 065
     Dates: start: 19990601, end: 20041101
  10. ULTRAM [Concomitant]
     Route: 065
     Dates: start: 20010101, end: 20030901
  11. ULTRACET [Concomitant]
     Route: 065
     Dates: start: 20011201, end: 20030201
  12. LISINOPRIL [Concomitant]
     Route: 065
     Dates: start: 20010901, end: 20041201

REACTIONS (11)
  - ANGINA PECTORIS [None]
  - ARTHROPATHY [None]
  - ASTHMA [None]
  - CEREBROVASCULAR ACCIDENT [None]
  - DEPRESSION [None]
  - DIABETES MELLITUS NON-INSULIN-DEPENDENT [None]
  - DIARRHOEA [None]
  - HYPERTENSION [None]
  - LIMB DISCOMFORT [None]
  - PAIN [None]
  - PNEUMONIA [None]
